FAERS Safety Report 23322399 (Version 1)
Quarter: 2023Q4

REPORT INFORMATION
  Report Type: Spontaneous
  Country: US (occurrence: None)
  Receive Date: 20231220
  Receipt Date: 20231220
  Transmission Date: 20240110
  Serious: No
  Sender: FDA-Public Use
  Company Number: None

PATIENT
  Sex: Male

DRUGS (2)
  1. VIGABATRIN [Suspect]
     Active Substance: VIGABATRIN
     Indication: Epilepsy
     Dosage: FREQUENCY : TWICE A DAY;?
     Route: 048
     Dates: start: 201812
  2. GENOTROPIN [Concomitant]
     Active Substance: SOMATROPIN

REACTIONS (3)
  - Blindness [None]
  - Neurotoxicity [None]
  - Therapy cessation [None]
